FAERS Safety Report 22535271 (Version 1)
Quarter: 2023Q2

REPORT INFORMATION
  Report Type: Spontaneous
  Country: US (occurrence: None)
  Receive Date: 20230607
  Receipt Date: 20230607
  Transmission Date: 20230721
  Serious: No
  Sender: FDA-Public Use
  Company Number: None

PATIENT
  Age: 36 Year
  Sex: Female
  Weight: 65.25 kg

DRUGS (3)
  1. OCTISALATE\OCTOCRYLENE\ZINC OXIDE [Suspect]
     Active Substance: OCTISALATE\OCTOCRYLENE\ZINC OXIDE
     Indication: Prophylaxis against solar radiation
     Dates: start: 20230527, end: 20230527
  2. LO LOESTRIN FE [Concomitant]
     Active Substance: ETHINYL ESTRADIOL\NORETHINDRONE ACETATE
  3. ONE A DAY GUMMY MULTIVITAMINS [Concomitant]

REACTIONS (7)
  - Aphthous ulcer [None]
  - Lip blister [None]
  - Lip swelling [None]
  - Lip erythema [None]
  - Sinusitis [None]
  - Lip pain [None]
  - Skin tightness [None]

NARRATIVE: CASE EVENT DATE: 20230530
